FAERS Safety Report 6967393-2 (Version None)
Quarter: 2010Q3

REPORT INFORMATION
  Report Type: 
  Country: None (occurrence: None)
  Receive Date: 20100901
  Receipt Date: 20100823
  Transmission Date: 20110219
  Serious: Yes (Disabling)
  Sender: FDA-Public Use
  Company Number: 2010US002047

PATIENT
  Age: 64 Year
  Sex: Female
  Weight: 55 kg

DRUGS (9)
  1. AMBISOME [Suspect]
     Indication: CANDIDIASIS
     Dosage: 200 MG, UID/QD, IV NOS
     Route: 042
     Dates: start: 20100511, end: 20100528
  2. SOLUTIONS FOR PARENTERAL NUTRITION [Concomitant]
  3. ELECTROLYTE SOLUTIONS [Concomitant]
  4. LANSOPRAZOLE [Concomitant]
  5. CO-AMOXICILLIN (AMOXICILLIN SODIUM, CLAVULANATE, POTASSIUM) [Concomitant]
  6. ALFENTANIL [Concomitant]
  7. METOPROLOL SUCCINATE [Concomitant]
  8. PANTOPRAZOLE SODIUM [Concomitant]
  9. PIPERACILLIN SODIUM AND TAZOBACTAM SODIUM [Concomitant]

REACTIONS (1)
  - DEAFNESS [None]
